FAERS Safety Report 7268052-1 (Version None)
Quarter: 2010Q4

REPORT INFORMATION
  Report Type: 
  Country: None (occurrence: None)
  Receive Date: 20101206
  Receipt Date: 20101206
  Transmission Date: 20110411
  Serious: Yes (Other)
  Sender: FDA-Public Use
  Company Number: 2010SP040130

PATIENT
  Age: 40 Year
  Sex: Female

DRUGS (4)
  1. SAPHRIS [Suspect]
     Indication: PRODUCT USED FOR UNKNOWN INDICATION
     Dosage: 5 MG; BID; SL
     Route: 060
     Dates: start: 20100101, end: 20100901
  2. LAMICTAL [Concomitant]
  3. ABILIFY [Concomitant]
  4. GEODON [Concomitant]

REACTIONS (2)
  - TARDIVE DYSKINESIA [None]
  - TREMOR [None]
